FAERS Safety Report 13476664 (Version 1)
Quarter: 2017Q2

REPORT INFORMATION
  Report Type: Spontaneous
  Country: US (occurrence: US)
  Receive Date: 20170425
  Receipt Date: 20170425
  Transmission Date: 20170830
  Serious: Yes (Hospitalization, Other)
  Sender: FDA-Public Use
  Company Number: US-NOVOPROD-541586

PATIENT
  Age: 63 Year
  Sex: Female
  Weight: 95.24 kg

DRUGS (1)
  1. NOVOLOG [Suspect]
     Active Substance: INSULIN ASPART
     Indication: TYPE 2 DIABETES MELLITUS
     Dosage: 10 U, TID BEFORE MEALS
     Route: 058

REACTIONS (2)
  - Post procedural haemorrhage [Not Recovered/Not Resolved]
  - Venous occlusion [Recovered/Resolved]

NARRATIVE: CASE EVENT DATE: 201604
